FAERS Safety Report 5755790-2 (Version None)
Quarter: 2008Q2

REPORT INFORMATION
  Report Type: 
  Country: None (occurrence: None)
  Receive Date: 20080602
  Receipt Date: 20080526
  Transmission Date: 20081010
  Serious: Yes (Hospitalization, Other)
  Sender: FDA-Public Use
  Company Number: PHHY2008FR09157

PATIENT
  Sex: Female

DRUGS (3)
  1. TEGRETOL [Suspect]
     Dosage: UNK
     Route: 048
  2. PROZAC [Suspect]
     Dosage: UNK
     Route: 048
     Dates: start: 20080507, end: 20080514
  3. COAPROVEL [Suspect]
     Dosage: UNK
     Route: 048
     Dates: end: 20080514

REACTIONS (4)
  - DIARRHOEA [None]
  - HYPONATRAEMIA [None]
  - NAUSEA [None]
  - VOMITING [None]
